FAERS Safety Report 8003997-6 (Version None)
Quarter: 2011Q4

REPORT INFORMATION
  Report Type: 
  Country: None (occurrence: None)
  Receive Date: 20111222
  Receipt Date: 20111219
  Transmission Date: 20120403
  Serious: Yes (Hospitalization)
  Sender: FDA-Public Use
  Company Number: US-ROCHE-1023601

PATIENT
  Age: 73 Year
  Sex: Male
  Weight: 85.443 kg

DRUGS (1)
  1. MABTHERA [Suspect]
     Indication: CHRONIC LYMPHOCYTIC LEUKAEMIA

REACTIONS (8)
  - HYPERTENSIVE HEART DISEASE [None]
  - RENAL FAILURE CHRONIC [None]
  - PYREXIA [None]
  - SYSTEMIC INFLAMMATORY RESPONSE SYNDROME [None]
  - DIABETIC NEPHROPATHY [None]
  - THROMBOCYTOPENIA [None]
  - RASH [None]
  - ANAEMIA [None]
